FAERS Safety Report 11098706 (Version 2)
Quarter: 2015Q2

REPORT INFORMATION
  Report Type: Report from Study
  Country: MX (occurrence: MX)
  Receive Date: 20150507
  Receipt Date: 20150520
  Transmission Date: 20150821
  Serious: Yes (Other)
  Sender: FDA-Public Use
  Company Number: PHHY2015MX051057

PATIENT
  Sex: Male

DRUGS (3)
  1. EBIXA [Concomitant]
     Active Substance: MEMANTINE HYDROCHLORIDE
     Indication: PRODUCT USED FOR UNKNOWN INDICATION
     Dosage: 40 DF, UNK
     Route: 065
  2. ULTIBRO BREEZHALER [Suspect]
     Active Substance: GLYCOPYRRONIUM\INDACATEROL
     Indication: NERVOUS SYSTEM DISORDER
     Dosage: 1 DF, UNK
     Route: 065
  3. ASPIRIN PROTECT [Concomitant]
     Active Substance: ASPIRIN
     Indication: INFARCTION
     Dosage: 1 DF, UNK
     Route: 065
     Dates: start: 2011

REACTIONS (4)
  - Memory impairment [Not Recovered/Not Resolved]
  - Malaise [Recovering/Resolving]
  - Off label use [Not Recovered/Not Resolved]
  - Cough [Unknown]
